FAERS Safety Report 17651604 (Version 1)
Quarter: 2020Q2

REPORT INFORMATION
  Report Type: Spontaneous
  Country: US (occurrence: US)
  Receive Date: 20200409
  Receipt Date: 20200409
  Transmission Date: 20200713
  Serious: No
  Sender: FDA-Public Use
  Company Number: None

PATIENT
  Age: 58 Year
  Sex: Female
  Weight: 79.38 kg

DRUGS (2)
  1. LAMOTRIGINE (LAMOTRIGINE 25MG TAB) [Suspect]
     Active Substance: LAMOTRIGINE
     Indication: TEMPORAL LOBE EPILEPSY
     Route: 048
     Dates: start: 20181126
  2. LACOSAMIDE (LACOSAMIDE 50MG TAB) [Suspect]
     Active Substance: LACOSAMIDE
     Indication: TEMPORAL LOBE EPILEPSY
     Dosage: ?          OTHER FREQUENCY:UNKNOWN;?
     Route: 048
     Dates: start: 20181204

REACTIONS (4)
  - Respiratory distress [None]
  - Dyspnoea [None]
  - Tachypnoea [None]
  - Pharyngeal swelling [None]

NARRATIVE: CASE EVENT DATE: 20190103
